FAERS Safety Report 20431744 (Version 1)
Quarter: 2022Q1

REPORT INFORMATION
  Report Type: Report from Study
  Country: FR (occurrence: FR)
  Receive Date: 20220204
  Receipt Date: 20220204
  Transmission Date: 20220424
  Serious: Yes (Other)
  Sender: FDA-Public Use
  Company Number: FR-OTSUKA-2022_004197

PATIENT
  Age: 44 Year
  Sex: Male
  Weight: 74 kg

DRUGS (11)
  1. TOLVAPTAN [Suspect]
     Active Substance: TOLVAPTAN
     Indication: Congenital cystic kidney disease
     Dosage: 45 MG, UNK
     Route: 048
     Dates: start: 20191205
  2. TOLVAPTAN [Suspect]
     Active Substance: TOLVAPTAN
     Dosage: 15 MG, UNK
     Route: 048
     Dates: start: 20191205
  3. TOLVAPTAN [Suspect]
     Active Substance: TOLVAPTAN
     Dosage: 60 MG, UNK
     Route: 048
     Dates: start: 20200324
  4. TOLVAPTAN [Suspect]
     Active Substance: TOLVAPTAN
     Dosage: 30 MG, UNK
     Route: 048
     Dates: start: 20200324
  5. TOLVAPTAN [Suspect]
     Active Substance: TOLVAPTAN
     Dosage: 90 MG, UNK
     Route: 048
     Dates: start: 20200629
  6. TOLVAPTAN [Suspect]
     Active Substance: TOLVAPTAN
     Dosage: 30 MG, UNK
     Route: 048
     Dates: start: 20200629
  7. CHOLECALCIFEROL [Concomitant]
     Active Substance: CHOLECALCIFEROL
     Indication: Product used for unknown indication
     Dosage: 2.5 MG, QM
     Route: 048
     Dates: start: 20180703, end: 20200629
  8. CHOLECALCIFEROL [Concomitant]
     Active Substance: CHOLECALCIFEROL
     Dosage: 2.5 MG, EVERY 2 MONTHS
     Route: 048
     Dates: start: 20200629, end: 20201215
  9. CHOLECALCIFEROL [Concomitant]
     Active Substance: CHOLECALCIFEROL
     Dosage: 2.5 MG, QM
     Route: 048
     Dates: start: 20201216, end: 20210802
  10. CHOLECALCIFEROL [Concomitant]
     Active Substance: CHOLECALCIFEROL
     Dosage: 2.5 MG, TWICE PER MONTH
     Route: 048
     Dates: start: 20210803
  11. IRBESARTAN [Concomitant]
     Active Substance: IRBESARTAN
     Indication: Hypertension
     Dosage: 150 MG, QD
     Route: 048
     Dates: start: 20150121

REACTIONS (1)
  - Diabetes insipidus [Not Recovered/Not Resolved]

NARRATIVE: CASE EVENT DATE: 20191205
